FAERS Safety Report 4320217-4 (Version None)
Quarter: 2004Q1

REPORT INFORMATION
  Report Type: 
  Country: None (occurrence: None)
  Receive Date: 20040317
  Receipt Date: 20040303
  Transmission Date: 20041129
  Serious: Yes (Hospitalization)
  Sender: FDA-Public Use
  Company Number: ZANA001136

PATIENT
  Age: 24 Year
  Sex: Male
  Weight: 40 kg

DRUGS (5)
  1. TIZANIDINE HCL [Suspect]
     Indication: HYPERTONIA
     Dosage: 12 MG DAILY ORAL
     Route: 048
     Dates: start: 20010503, end: 20010101
  2. LIORESAL [Suspect]
     Indication: HYPERTONIA
     Dosage: 30 MG DAILY ORAL
     Route: 048
     Dates: start: 20000701, end: 20011201
  3. MYOLASTAN (TETRAZEPAM) [Suspect]
     Indication: HYPERTONIA
     Dosage: 75 MG DAILY ORAL
     Route: 048
     Dates: start: 20000701, end: 20011201
  4. CIPROFLOXACIN [Suspect]
     Indication: SKIN INFECTION
     Dosage: 1 G DAILY
     Dates: start: 20011126, end: 20011201
  5. VOLTAREN [Concomitant]

REACTIONS (6)
  - BRADYCARDIA [None]
  - DRUG INTERACTION [None]
  - HYPOTENSION [None]
  - HYPOTONIA [None]
  - MALAISE [None]
  - SKIN INFECTION [None]
